FAERS Safety Report 9671732 (Version 2)
Quarter: 2013Q4

REPORT INFORMATION
  Report Type: Spontaneous
  Country: JP (occurrence: JP)
  Receive Date: 20131106
  Receipt Date: 20131106
  Transmission Date: 20140711
  Serious: Yes (Other)
  Sender: FDA-Public Use
  Company Number: JP-PFIZER INC-2013278707

PATIENT
  Age: 75 Year
  Sex: Male

DRUGS (1)
  1. ZYVOX [Suspect]
     Indication: STAPHYLOCOCCAL INFECTION
     Dosage: 1200 MG DAILY
     Route: 042
     Dates: start: 201309, end: 201309

REACTIONS (3)
  - Renal impairment [Unknown]
  - Hepatic function abnormal [Unknown]
  - Pyrexia [Recovered/Resolved]
